FAERS Safety Report 12304348 (Version 1)
Quarter: 2016Q2

REPORT INFORMATION
  Report Type: Spontaneous
  Country: HU (occurrence: HU)
  Receive Date: 20160426
  Receipt Date: 20160426
  Transmission Date: 20160815
  Serious: Yes (Other)
  Sender: FDA-Public Use
  Company Number: HU-AMGEN-HUNSP2016052353

PATIENT
  Age: 68 Year
  Sex: Male
  Weight: 104 kg

DRUGS (5)
  1. ZOCOR [Concomitant]
     Active Substance: SIMVASTATIN
     Indication: BLOOD CHOLESTEROL
     Dosage: 40 MG, 1 IN THE EVENING, STARTED 15 YEARS AGO
  2. NOLPAZA [Concomitant]
     Active Substance: PANTOPRAZOLE SODIUM
     Indication: PROPHYLAXIS
     Dosage: 40 MG, 1 IN THE MORNING, STARTED 15 YEARS AGO
  3. TALLITON [Concomitant]
     Indication: CARDIAC DISORDER
     Dosage: 12.5 MG, 2X1 STARTED 5 YEARS AGO
  4. ENBREL [Suspect]
     Active Substance: ETANERCEPT
     Indication: RHEUMATOID ARTHRITIS
     Dosage: 50 MG, INJECTION, WEEKLY 1X1
     Route: 065
     Dates: start: 2006, end: 201508
  5. CHINOTAL [Concomitant]
     Active Substance: PENTOXIFYLLINE
     Indication: VASODILATATION
     Dosage: 400 MG, 2X1 STARTED 20 YEARS AGO

REACTIONS (3)
  - Drug ineffective [Recovered/Resolved]
  - Rheumatoid arthritis [Recovered/Resolved]
  - Condition aggravated [Recovered/Resolved]

NARRATIVE: CASE EVENT DATE: 201408
